FAERS Safety Report 14401952 (Version 1)
Quarter: 2018Q1

REPORT INFORMATION
  Report Type: Spontaneous
  Country: SA (occurrence: SA)
  Receive Date: 20180116
  Receipt Date: 20180116
  Transmission Date: 20180509
  Serious: Yes (Hospitalization)
  Sender: FDA-Public Use
  Company Number: None

PATIENT
  Age: 58 Year
  Sex: Male

DRUGS (1)
  1. COLISTIN [Suspect]
     Active Substance: COLISTIN
     Indication: SEPTIC SHOCK
     Route: 042
     Dates: start: 20170111, end: 20170117

REACTIONS (2)
  - Blood creatinine increased [None]
  - Confusional state [None]

NARRATIVE: CASE EVENT DATE: 20170116
